FAERS Safety Report 16438134 (Version 7)
Quarter: 2021Q3

REPORT INFORMATION
  Report Type: Report from Study
  Country: KR (occurrence: KR)
  Receive Date: 20190617
  Receipt Date: 20210914
  Transmission Date: 20211014
  Serious: No
  Sender: FDA-Public Use
  Company Number: KR-IPSEN BIOPHARMACEUTICALS, INC.-2019-07574

PATIENT
  Age: 50 Year
  Sex: Male

DRUGS (13)
  1. FENTANYL CITRATE. [Concomitant]
     Active Substance: FENTANYL CITRATE
     Indication: ABDOMINAL PAIN
  2. PRUCALOPRIDE [Concomitant]
     Active Substance: PRUCALOPRIDE
     Indication: CONSTIPATION
     Dosage: 1 MG, PRN
     Route: 048
     Dates: start: 20190329, end: 20190423
  3. DEXAMETHASONE. [Concomitant]
     Active Substance: DEXAMETHASONE
     Indication: PROPHYLAXIS
     Dosage: 10 MG, 2 TIMES IN A WEEK
     Route: 042
     Dates: start: 20190223, end: 20190527
  4. LEUCOVORIN. [Concomitant]
     Active Substance: LEUCOVORIN
     Indication: PANCREATIC CARCINOMA METASTATIC
     Dosage: 644 MG, DAILY
     Route: 042
     Dates: start: 20190402
  5. FENTANYL CITRATE. [Concomitant]
     Active Substance: FENTANYL CITRATE
     Indication: BACK PAIN
     Dosage: 100 MICROGRAMS, AS NEEDED, ORALLY
     Route: 048
     Dates: start: 20190401
  6. LACTULOSE. [Concomitant]
     Active Substance: LACTULOSE
     Indication: CONSTIPATION
     Dosage: 15 ML, PRN
     Route: 048
     Dates: start: 20190129
  7. ULTRACET [Concomitant]
     Active Substance: ACETAMINOPHEN\TRAMADOL HYDROCHLORIDE
     Indication: ABDOMINAL PAIN
  8. ONIVYDE [Suspect]
     Active Substance: IRINOTECAN HYDROCHLORIDE
     Indication: PANCREATIC CARCINOMA METASTATIC
     Dosage: 112 MG, ONE DOSE
     Route: 042
     Dates: start: 20190402
  9. GRANISETRON HYDROCHLORIDE. [Concomitant]
     Active Substance: GRANISETRON HYDROCHLORIDE
     Indication: PROPHYLAXIS OF NAUSEA AND VOMITING
     Dosage: 34.3 MG, PRN
     Route: 062
     Dates: start: 20190314, end: 20190527
  10. ULTRACET [Concomitant]
     Active Substance: ACETAMINOPHEN\TRAMADOL HYDROCHLORIDE
     Indication: BACK PAIN
     Dosage: 1 DF, PRN
     Route: 048
     Dates: start: 20181129, end: 20190528
  11. ATROPINE SULFATE. [Concomitant]
     Active Substance: ATROPINE SULFATE
     Indication: PROPHYLAXIS
     Dosage: 0.5 MG
     Route: 058
     Dates: start: 20190223, end: 20190526
  12. PALONOSETRON. [Concomitant]
     Active Substance: PALONOSETRON HYDROCHLORIDE
     Indication: PROPHYLAXIS
     Dosage: .25 MG, EVERY 2 WEEKS
     Route: 042
     Dates: start: 20190223, end: 20190526
  13. FLUOROURACIL. [Concomitant]
     Active Substance: FLUOROURACIL
     Indication: PANCREATIC CARCINOMA METASTATIC
     Dosage: 1932 MG, DAILY
     Route: 042
     Dates: start: 20190402

REACTIONS (2)
  - Nausea [Not Recovered/Not Resolved]
  - Dizziness [Recovered/Resolved]

NARRATIVE: CASE EVENT DATE: 20190402
